FAERS Safety Report 9628356 (Version 3)
Quarter: 2013Q4

REPORT INFORMATION
  Report Type: Spontaneous
  Country: JP (occurrence: JP)
  Receive Date: 20131017
  Receipt Date: 20131120
  Transmission Date: 20140711
  Serious: Yes (Hospitalization)
  Sender: FDA-Public Use
  Company Number: JP-AMGEN-JPNSP2013072713

PATIENT
  Age: 73 Year
  Sex: Female
  Weight: 48 kg

DRUGS (3)
  1. ENBREL [Suspect]
     Indication: PRODUCT USED FOR UNKNOWN INDICATION
     Dosage: 25 MG, 2X/WEEK
     Route: 058
     Dates: start: 20130905, end: 20130926
  2. ISCOTIN                            /00030201/ [Concomitant]
     Dosage: 200 MG, 1X/DAY
     Route: 048
     Dates: start: 20130613
  3. PYDOXAL [Concomitant]
     Dosage: 20 MG, 1X/DAY
     Route: 048
     Dates: start: 20130613

REACTIONS (2)
  - Off label use [Recovered/Resolved]
  - Mouth ulceration [Recovered/Resolved]
